FAERS Safety Report 5854222-3 (Version None)
Quarter: 2008Q3

REPORT INFORMATION
  Report Type: 
  Country: None (occurrence: None)
  Receive Date: 20080822
  Receipt Date: 20080814
  Transmission Date: 20090109
  Serious: Yes (Other)
  Sender: FDA-Public Use
  Company Number: PHNU2008DE01607

PATIENT
  Sex: Female

DRUGS (17)
  1. RASILEZ [Suspect]
     Indication: HYPERTENSION
     Dosage: 1 DF, QD
     Route: 048
     Dates: start: 20080411, end: 20080527
  2. XIPAMIDE [Suspect]
     Indication: HYPERTENSION
     Dosage: 20 MG, QD
     Dates: start: 20080408, end: 20080417
  3. XIPAMIDE [Suspect]
     Indication: CARDIAC FAILURE
  4. DIURETICS [Suspect]
  5. FUROSEMIDE [Suspect]
  6. ACE INHIBITOR NOS [Suspect]
  7. ENALAPRIL MALEATE [Concomitant]
     Indication: HYPERTENSION
     Dosage: 1 DF, QD
     Dates: start: 20080201
  8. TOREM [Concomitant]
     Indication: HYPERTENSION
     Dosage: 1 DF, BID
     Dates: start: 20080201
  9. TOREM [Concomitant]
     Indication: CARDIAC FAILURE
  10. MODIP ^ASTRA^ [Concomitant]
     Dosage: 1 DF, QD
  11. METOPROLOL SUCCINATE [Concomitant]
     Dosage: 1 DF, BID
  12. CLONIDINE [Concomitant]
     Dosage: 1 DF, BID
  13. CIPRALEX [Concomitant]
     Dosage: 1 DF, QD
  14. PROMETHAZINE [Concomitant]
     Dosage: UNK
  15. PANTOZOL [Concomitant]
     Dosage: 1 DF, QD
  16. TPN ELECTROLYTES IN PLASTIC CONTAINER [Concomitant]
     Dosage: 2 LITER/DAY
  17. FRAGMIN [Concomitant]
     Dosage: 1 DF, QD
     Route: 058

REACTIONS (1)
  - BLOOD UREA INCREASED [None]
